FAERS Safety Report 9242072 (Version 1)
Quarter: 2013Q2

REPORT INFORMATION
  Report Type: Spontaneous
  Country: ZA (occurrence: ZA)
  Receive Date: 20130419
  Receipt Date: 20130419
  Transmission Date: 20140414
  Serious: Yes (Other)
  Sender: FDA-Public Use
  Company Number: PHHY2013ZA036035

PATIENT
  Age: 16 Year
  Sex: Female

DRUGS (6)
  1. RITALIN [Suspect]
     Indication: ATTENTION DEFICIT/HYPERACTIVITY DISORDER
     Dosage: 40 MG, UNK
  2. RITALIN [Suspect]
     Dosage: 60 MG, UNK
  3. LAMICTIN [Concomitant]
     Indication: MENTAL DISORDER
     Dosage: 50 MG, UNK
  4. LAMICTIN [Concomitant]
     Indication: BIPOLAR DISORDER
  5. RISPERDAL [Concomitant]
     Indication: MENTAL DISORDER
     Dosage: 1 MG, UNK
  6. RISPERDAL [Concomitant]
     Indication: BIPOLAR DISORDER

REACTIONS (1)
  - Stevens-Johnson syndrome [Unknown]
